FAERS Safety Report 6208899-3 (Version None)
Quarter: 2009Q2

REPORT INFORMATION
  Report Type: 
  Country: None (occurrence: None)
  Receive Date: 20090529
  Receipt Date: 20090521
  Transmission Date: 20091009
  Serious: Yes (Hospitalization)
  Sender: FDA-Public Use
  Company Number: B0576196A

PATIENT
  Sex: Female

DRUGS (4)
  1. PAROXETINE HCL [Suspect]
     Indication: DEPRESSION
     Dosage: 20MG PER DAY
     Route: 048
     Dates: start: 20090410, end: 20090420
  2. TEGRETOL [Suspect]
     Indication: DEPRESSION
     Dosage: 200MG PER DAY
     Route: 048
     Dates: start: 20090410, end: 20090420
  3. ZOLPIDEM TARTRATE [Suspect]
     Indication: DEPRESSION
     Dosage: 10MG PER DAY
     Route: 048
     Dates: start: 20090410, end: 20090420
  4. DIAZEPAM [Concomitant]
     Indication: DEPRESSION
     Dosage: 5DROP PER DAY
     Dates: start: 20090401, end: 20090407

REACTIONS (1)
  - STEVENS-JOHNSON SYNDROME [None]
